APPROVED DRUG PRODUCT: CHLOROPTIC-P S.O.P.
Active Ingredient: CHLORAMPHENICOL; PREDNISOLONE
Strength: 1%;0.5%
Dosage Form/Route: OINTMENT;OPHTHALMIC
Application: A061188 | Product #001
Applicant: ALLERGAN PHARMACEUTICAL
Approved: Approved Prior to Jan 1, 1982 | RLD: No | RS: No | Type: DISCN